FAERS Safety Report 21257541 (Version 4)
Quarter: 2022Q3

REPORT INFORMATION
  Report Type: Spontaneous
  Country: US (occurrence: US)
  Receive Date: 20220826
  Receipt Date: 20220913
  Transmission Date: 20221027
  Serious: No
  Sender: FDA-Public Use
  Company Number: US-UNITED THERAPEUTICS-UNT-2022-016179

PATIENT
  Sex: Male
  Weight: 90.249 kg

DRUGS (5)
  1. REMODULIN [Suspect]
     Active Substance: TREPROSTINIL
     Indication: Pulmonary arterial hypertension
     Dosage: UNK, CONTINUING
     Route: 058
     Dates: start: 20220509
  2. REMODULIN [Suspect]
     Active Substance: TREPROSTINIL
     Dosage: 0.0395 ?G/KG, CONTINUING
     Route: 058
     Dates: start: 2022
  3. REMODULIN [Suspect]
     Active Substance: TREPROSTINIL
     Dosage: UNK, CONTINUING
     Route: 058
     Dates: start: 2022
  4. AMBRISENTAN [Concomitant]
     Active Substance: AMBRISENTAN
     Indication: Product used for unknown indication
     Route: 065
  5. SILDENAFIL [Concomitant]
     Active Substance: SILDENAFIL
     Indication: Product used for unknown indication
     Route: 065

REACTIONS (11)
  - Infusion site pain [Unknown]
  - Infusion site erythema [Unknown]
  - Infusion site induration [Not Recovered/Not Resolved]
  - Infusion site swelling [Unknown]
  - Device maintenance issue [Recovered/Resolved]
  - Pain [Unknown]
  - Headache [Unknown]
  - Infusion site discharge [Unknown]
  - Infusion site exfoliation [Unknown]
  - Infusion site reaction [Unknown]
  - Device placement issue [Unknown]

NARRATIVE: CASE EVENT DATE: 20220101
